FAERS Safety Report 6664173-2 (Version None)
Quarter: 2010Q2

REPORT INFORMATION
  Report Type: 
  Country: None (occurrence: None)
  Receive Date: 20100401
  Receipt Date: 20100329
  Transmission Date: 20101027
  Serious: Yes (Other)
  Sender: FDA-Public Use
  Company Number: CN-PFIZER INC-2010039318

PATIENT
  Sex: Male

DRUGS (3)
  1. VIAGRA [Suspect]
     Dosage: 100MG, 1/3 TABLET
     Dates: start: 20090101
  2. VIAGRA [Suspect]
     Dosage: 50 MG, UNK
     Route: 048
     Dates: start: 20090101
  3. VIAGRA [Suspect]
     Dosage: 100 MG, UNK
     Route: 048
     Dates: start: 20100101

REACTIONS (2)
  - DRUG INEFFECTIVE [None]
  - HAEMORRHAGE [None]
